FAERS Safety Report 21756021 (Version 1)
Quarter: 2022Q4

REPORT INFORMATION
  Report Type: Spontaneous
  Country: RU (occurrence: RU)
  Receive Date: 20221220
  Receipt Date: 20221220
  Transmission Date: 20230112
  Serious: Yes (Hospitalization, Other)
  Sender: FDA-Public Use
  Company Number: RU-FreseniusKabi-FK202217930

PATIENT
  Age: 8 Year
  Sex: Male

DRUGS (4)
  1. ETOPOSIDE [Suspect]
     Active Substance: ETOPOSIDE
     Indication: Chemotherapy
     Dosage: 1ST COURSE OF CHEMOTHERAPY ACCORDING TO THE LX-DAL-GROH-2001 PROTOCOL AND THE 1ST COURSE OF OEPA
     Dates: start: 20210212
  2. PREDNISOLONE [Suspect]
     Active Substance: PREDNISOLONE
     Indication: Chemotherapy
     Dosage: 1ST COURSE OF CHEMOTHERAPY ACCORDING TO THE LX-DAL-GROH-2001 PROTOCOL AND THE 1ST COURSE OF OEPA
     Dates: start: 20210212
  3. VINCRISTINE [Suspect]
     Active Substance: VINCRISTINE
     Indication: Chemotherapy
     Dosage: 1ST COURSE OF CHEMOTHERAPY ACCORDING TO THE LX-DAL-GROH-2001 PROTOCOL AND THE 1ST COURSE OF OEPA
     Dates: start: 20210212
  4. ADRIAMYCIN [Suspect]
     Active Substance: DOXORUBICIN HYDROCHLORIDE
     Indication: Chemotherapy
     Dosage: 1ST COURSE OF CHEMOTHERAPY ACCORDING TO THE LX-DAL-GROH-2001 PROTOCOL AND THE 1ST COURSE OF OEPA
     Dates: start: 20210212

REACTIONS (7)
  - Myelosuppression [Unknown]
  - Febrile neutropenia [Unknown]
  - Generalised tonic-clonic seizure [Unknown]
  - Large intestine perforation [Unknown]
  - Large intestinal ulcer [Unknown]
  - Clostridium colitis [Unknown]
  - Peritonitis [Unknown]

NARRATIVE: CASE EVENT DATE: 20210224
